FAERS Safety Report 4358298-4 (Version None)
Quarter: 2004Q2

REPORT INFORMATION
  Report Type: 
  Country: None (occurrence: None)
  Receive Date: 20040511
  Receipt Date: 20040511
  Transmission Date: 20050107
  Serious: Yes (Life-Threatening, Hospitalization)
  Sender: FDA-Public Use
  Company Number: None

PATIENT
  Age: 50 Year
  Sex: Male
  Weight: 67.1 kg

DRUGS (17)
  1. ACETAMINOPHEN [Suspect]
  2. ALBUTEROL [Concomitant]
  3. METFORMIN HCL [Concomitant]
  4. AMLODIPINE [Concomitant]
  5. DIPHENHYDRAMINE HCL [Concomitant]
  6. MAGIC MOUTHWASH [Concomitant]
  7. IPRATROPIUM INH [Concomitant]
  8. FENTANYL [Concomitant]
  9. MORPHINE [Concomitant]
  10. METHADONE HCL [Concomitant]
  11. FLUNISOLIDE INH [Concomitant]
  12. GABAPENTIN [Concomitant]
  13. SILDENAFIL [Concomitant]
  14. INFLUENZA VIRUS VACCINE [Concomitant]
  15. FORMOTEROL INH [Concomitant]
  16. HYDROCODONE 5 MG/ACETAMINOPHEN [Concomitant]
  17. SALMETEROL INH [Concomitant]

REACTIONS (1)
  - HEPATITIS ACUTE [None]
